FAERS Safety Report 12242190 (Version 7)
Quarter: 2018Q4

REPORT INFORMATION
  Report Type: Report from Study
  Country: US (occurrence: US)
  Receive Date: 20160406
  Receipt Date: 20181022
  Transmission Date: 20190204
  Serious: Yes (Death, Hospitalization)
  Sender: FDA-Public Use
  Company Number: US-ACTELION-A-NJ2016-131742

PATIENT
  Age: 28 Year
  Sex: Female

DRUGS (11)
  1. OPSUMIT [Suspect]
     Active Substance: MACITENTAN
     Indication: PULMONARY ARTERIAL HYPERTENSION
     Dosage: 10 MG, QD
     Route: 048
     Dates: start: 20160103, end: 20160201
  2. VASOPRESSIN. [Concomitant]
     Active Substance: VASOPRESSIN
     Dosage: UNK
     Dates: start: 20160317
  3. NEO SYNEPHRINE [Concomitant]
     Dosage: UNK
     Dates: start: 20160319
  4. ONDANSETRON [Concomitant]
     Active Substance: ONDANSETRON
     Dosage: UNK
     Dates: start: 20160304
  5. KAYEXALATE [Concomitant]
     Active Substance: SODIUM POLYSTYRENE SULFONATE
     Dosage: UNK
     Dates: start: 20160318
  6. INSULIN [Concomitant]
     Active Substance: INSULIN NOS
  7. CEFAZOLIN [Concomitant]
     Active Substance: CEFAZOLIN
     Dosage: UNK
     Dates: start: 20160305
  8. METHYLPREDNISOLONE. [Concomitant]
     Active Substance: METHYLPREDNISOLONE
     Dosage: UNK
     Dates: start: 20160304
  9. VELETRI [Suspect]
     Active Substance: EPOPROSTENOL
     Indication: PULMONARY ARTERIAL HYPERTENSION
     Dosage: 20 NG/KG, PER MIN
     Route: 042
     Dates: start: 20150529, end: 20160320
  10. AMBRISENTAN [Concomitant]
     Active Substance: AMBRISENTAN
     Dosage: UNK
     Dates: start: 201405, end: 20160102
  11. LEVOPHED [Concomitant]
     Active Substance: NOREPINEPHRINE BITARTRATE
     Dosage: UNK
     Dates: start: 20160318

REACTIONS (20)
  - Catheter site erythema [Recovered/Resolved]
  - Pulmonary arterial hypertension [Fatal]
  - Disease progression [Fatal]
  - Device related sepsis [Recovered/Resolved]
  - Dyspnoea [Unknown]
  - Staphylococcal infection [Recovered/Resolved]
  - Acute kidney injury [Not Recovered/Not Resolved]
  - Catheter culture positive [Recovered/Resolved]
  - Catheter placement [Unknown]
  - Shock [Fatal]
  - Chills [Recovered/Resolved]
  - Thrombophlebitis superficial [Unknown]
  - Mechanical ventilation [Unknown]
  - Device related infection [Recovered/Resolved]
  - Catheter site swelling [Recovered/Resolved]
  - Oxygen saturation decreased [Unknown]
  - Hypotension [Unknown]
  - Pyrexia [Recovered/Resolved]
  - Blood culture positive [Recovered/Resolved]
  - Catheter site pain [Recovered/Resolved]

NARRATIVE: CASE EVENT DATE: 20160304
